FAERS Safety Report 10390829 (Version 1)
Quarter: 2014Q3

REPORT INFORMATION
  Report Type: Spontaneous
  Country: US (occurrence: US)
  Receive Date: 20140818
  Receipt Date: 20140818
  Transmission Date: 20150326
  Serious: No
  Sender: FDA-Public Use
  Company Number: US-TEVA-502732USA

PATIENT
  Age: 36 Year
  Sex: Female
  Weight: 58.11 kg

DRUGS (2)
  1. IRON [Concomitant]
     Active Substance: IRON
     Indication: ANAEMIA
  2. PARAGARD T380A [Suspect]
     Active Substance: COPPER
     Indication: CONTRACEPTION
     Route: 015
     Dates: start: 20130710, end: 20140813

REACTIONS (3)
  - Metrorrhagia [Unknown]
  - Device expulsion [Recovered/Resolved]
  - Exposure during breast feeding [Unknown]

NARRATIVE: CASE EVENT DATE: 20140813
